FAERS Safety Report 19587754 (Version 1)
Quarter: 2021Q3

REPORT INFORMATION
  Report Type: Spontaneous
  Country: IN (occurrence: IN)
  Receive Date: 20210721
  Receipt Date: 20210721
  Transmission Date: 20211014
  Serious: Yes (Hospitalization, Other)
  Sender: FDA-Public Use
  Company Number: IN-ALKEM LABORATORIES LIMITED-IN-ALKEM-2021-02792

PATIENT
  Age: 68 Year
  Sex: Female

DRUGS (4)
  1. PYRIDOSTIGMINE [Suspect]
     Active Substance: PYRIDOSTIGMINE
     Indication: MYASTHENIA GRAVIS
     Dosage: 60 MILLIGRAM, TID
     Route: 065
  2. AZATHIOPRINE. [Suspect]
     Active Substance: AZATHIOPRINE
     Indication: MYASTHENIA GRAVIS
     Dosage: 100 MILLIGRAM, QD
     Route: 065
  3. AZATHIOPRINE. [Suspect]
     Active Substance: AZATHIOPRINE
     Dosage: 50 MILLIGRAM, BID
     Route: 065
  4. PREDNISOLONE. [Suspect]
     Active Substance: PREDNISOLONE
     Indication: MYASTHENIA GRAVIS
     Dosage: 50 MILLIGRAM, QD
     Route: 065

REACTIONS (4)
  - Osteomyelitis [Recovered/Resolved]
  - Psoas abscess [Recovered/Resolved]
  - Nocardiosis [Recovered/Resolved]
  - Pyomyositis [Recovered/Resolved]
